FAERS Safety Report 7638068-1 (Version None)
Quarter: 2011Q3

REPORT INFORMATION
  Report Type: 
  Country: None (occurrence: None)
  Receive Date: 20110727
  Receipt Date: 20110720
  Transmission Date: 20111222
  Serious: Yes (Death, Hospitalization, Other)
  Sender: FDA-Public Use
  Company Number: US-JNJFOC-20110602266

PATIENT
  Sex: Female
  Weight: 81.65 kg

DRUGS (10)
  1. JANUVIA [Concomitant]
     Indication: DIABETES MELLITUS
     Route: 048
  2. UNSPECIFED MEDICATIONS [Suspect]
     Indication: PAIN
     Route: 065
  3. LISINOPRIL [Concomitant]
     Indication: CARDIAC DISORDER
     Route: 048
  4. PANTOPRAZOLE [Concomitant]
     Route: 048
  5. FUROSEMIDE [Concomitant]
     Indication: CARDIAC DISORDER
     Dosage: HALF A TABLET
     Route: 048
  6. LIPITOR [Concomitant]
     Indication: CARDIAC DISORDER
     Route: 048
  7. TRAMADOL HCL [Concomitant]
     Indication: CARDIAC DISORDER
     Route: 048
  8. FENTANYL [Suspect]
     Indication: PAIN
     Route: 062
  9. METOPROLOL TARTRATE [Concomitant]
     Indication: CARDIAC DISORDER
     Route: 048
  10. NAXIDINE [Concomitant]
     Indication: CARDIAC DISORDER
     Route: 048

REACTIONS (6)
  - CEREBROVASCULAR ACCIDENT [None]
  - INFECTION [None]
  - PNEUMONIA [None]
  - DIARRHOEA [None]
  - BEDRIDDEN [None]
  - ADVERSE DRUG REACTION [None]
